FAERS Safety Report 19519875 (Version 3)
Quarter: 2021Q3

REPORT INFORMATION
  Report Type: Spontaneous
  Country: US (occurrence: US)
  Receive Date: 20210712
  Receipt Date: 20210816
  Transmission Date: 20211014
  Serious: Yes (Other)
  Sender: FDA-Public Use
  Company Number: US-BAYER-2021-172912

PATIENT
  Age: 20 Year
  Sex: Female

DRUGS (1)
  1. KYLEENA [Suspect]
     Active Substance: LEVONORGESTREL
     Indication: CONTRACEPTION
     Dosage: 19.5 ?G, CONT
     Route: 015
     Dates: start: 20201203, end: 20210730

REACTIONS (4)
  - Genital haemorrhage [None]
  - Medical device pain [Recovered/Resolved]
  - Medical device discomfort [Recovered/Resolved]
  - Device dislocation [Recovered/Resolved]
